FAERS Safety Report 4903842-9 (Version None)
Quarter: 2006Q1

REPORT INFORMATION
  Report Type: 
  Country: None (occurrence: None)
  Receive Date: 20060208
  Receipt Date: 20050713
  Transmission Date: 20060701
  Serious: No
  Sender: FDA-Public Use
  Company Number: US-GLAXOSMITHKLINE-A0566111A

PATIENT
  Age: 22 Year
  Sex: Male

DRUGS (2)
  1. PAXIL [Suspect]
     Indication: PANIC DISORDER
     Dosage: 20MG PER DAY
     Route: 048
     Dates: end: 20050709
  2. ALCOHOL [Concomitant]
     Route: 048

REACTIONS (4)
  - ANOREXIA [None]
  - DRUG WITHDRAWAL SYNDROME [None]
  - INSOMNIA [None]
  - TINNITUS [None]
